FAERS Safety Report 25298910 (Version 1)
Quarter: 2025Q2

REPORT INFORMATION
  Report Type: Spontaneous
  Country: FR (occurrence: FR)
  Receive Date: 20250512
  Receipt Date: 20250512
  Transmission Date: 20250717
  Serious: Yes (Hospitalization, Other)
  Sender: CHEPLAPHARM
  Company Number: None

PATIENT
  Age: 30 Year
  Sex: Male

DRUGS (7)
  1. CLONAZEPAM [Suspect]
     Active Substance: CLONAZEPAM
     Route: 048
  2. LYRICA [Suspect]
     Active Substance: PREGABALIN
     Route: 048
     Dates: start: 202401
  3. COCAINE [Suspect]
     Active Substance: COCAINE
     Route: 045
     Dates: start: 2017
  4. CANNABIS SATIVA SUBSP. INDICA TOP [Suspect]
     Active Substance: CANNABIS SATIVA SUBSP. INDICA TOP
     Indication: Insomnia
  5. COCAINE [Suspect]
     Active Substance: COCAINE
     Route: 055
  6. EQUANIL [Suspect]
     Active Substance: MEPROBAMATE
  7. TRIHEXYPHENIDYL [Suspect]
     Active Substance: TRIHEXYPHENIDYL

REACTIONS (8)
  - Drug dependence [Recovering/Resolving]
  - Craniocerebral injury [Unknown]
  - Road traffic accident [Recovered/Resolved]
  - Agitation [Recovering/Resolving]
  - Intentional product misuse [Recovering/Resolving]
  - High risk sexual behaviour [Recovering/Resolving]
  - Memory impairment [Recovering/Resolving]
  - Aggression [Recovering/Resolving]
